FAERS Safety Report 25135970 (Version 1)
Quarter: 2025Q1

REPORT INFORMATION
  Report Type: Spontaneous
  Country: US (occurrence: None)
  Receive Date: 20250328
  Receipt Date: 20250328
  Transmission Date: 20250408
  Serious: Yes (Other)
  Sender: FDA-CTU
  Company Number: None

PATIENT
  Age: 42 Year
  Sex: Female
  Weight: 90.9 kg

DRUGS (4)
  1. ZEPBOUND [Suspect]
     Active Substance: TIRZEPATIDE
     Indication: Weight decreased
  2. SYNTHROID [Concomitant]
     Active Substance: LEVOTHYROXINE SODIUM
  3. ASPIRIN [Concomitant]
     Active Substance: ASPIRIN
  4. VITAMIN D NOS [Concomitant]
     Active Substance: CHOLECALCIFEROL\ERGOCALCIFEROL

REACTIONS (10)
  - Dyspepsia [None]
  - Nausea [None]
  - Palpitations [None]
  - Vision blurred [None]
  - Dizziness [None]
  - Dysphagia [None]
  - Presyncope [None]
  - Blood pressure decreased [None]
  - Hyperventilation [None]
  - Hypersensitivity [None]

NARRATIVE: CASE EVENT DATE: 20240822
